FAERS Safety Report 20389165 (Version 4)
Quarter: 2022Q2

REPORT INFORMATION
  Report Type: Report from Study
  Country: US (occurrence: US)
  Receive Date: 20220128
  Receipt Date: 20220608
  Transmission Date: 20220721
  Serious: No
  Sender: FDA-Public Use
  Company Number: US-NOVARTISTESTPH-NVSC2022US017801

PATIENT
  Sex: Male

DRUGS (5)
  1. ENTRESTO [Suspect]
     Active Substance: SACUBITRIL\VALSARTAN
     Indication: Cardiac failure chronic
     Dosage: 50 MG, BID, (24.3 MG OF SACUBITRIL AND 25.7 MG OF VALSARTAN)
     Route: 048
     Dates: start: 2019
  2. ENTRESTO [Suspect]
     Active Substance: SACUBITRIL\VALSARTAN
     Dosage: 50 MG, BID, (24.3 MG OF SACUBITRIL AND 25.7 MG OF VALSARTAN)
     Route: 048
     Dates: start: 2019
  3. ENTRESTO [Suspect]
     Active Substance: SACUBITRIL\VALSARTAN
     Dosage: 50 MG, BID, (24.3 MG OF SACUBITRIL AND 25.7 MG OF VALSARTAN)
     Route: 048
     Dates: start: 2019
  4. ENTRESTO [Suspect]
     Active Substance: SACUBITRIL\VALSARTAN
     Dosage: 50 MG, BID, (24.3 MG OF SACUBITRIL AND 25.7 MG OF VALSARTAN)
     Route: 048
     Dates: start: 2019
  5. ELIQUIS [Suspect]
     Active Substance: APIXABAN
     Indication: Product used for unknown indication
     Dosage: UNK
     Route: 065

REACTIONS (2)
  - Throat clearing [Unknown]
  - Blood creatinine increased [Recovering/Resolving]
